FAERS Safety Report 11025374 (Version 2)
Quarter: 2015Q2

REPORT INFORMATION
  Report Type: Report from Study
  Country: JP (occurrence: JP)
  Receive Date: 20150414
  Receipt Date: 20150417
  Transmission Date: 20150821
  Serious: Yes (Other)
  Sender: FDA-Public Use
  Company Number: JP-PFIZER INC-2015125564

PATIENT
  Age: 2 Year
  Sex: Female
  Weight: 8 kg

DRUGS (17)
  1. SIROLIMUS. [Suspect]
     Active Substance: SIROLIMUS
     Dosage: 0.2 MG, DAILY
     Route: 048
     Dates: start: 20150311, end: 20150322
  2. ELENTAL [Concomitant]
     Active Substance: MINERALS\VITAMINS
     Dosage: UNK
     Route: 048
  3. BAKTAR [Concomitant]
     Active Substance: SULFAMETHOXAZOLE\TRIMETHOPRIM
     Indication: PROPHYLAXIS
     Dosage: UNK
     Route: 048
  4. ELNEOPA NO.1 [Concomitant]
     Dosage: UNK
  5. URSODEOXYCHOLIC ACID [Concomitant]
     Active Substance: URSODIOL
     Dosage: UNK
  6. BIOFERMIN R [Concomitant]
     Active Substance: BACILLUS SUBTILIS\LACTOBACILLUS ACIDOPHILUS\STREPTOCOCCUS FAECAIS
     Dosage: UNK
  7. ERYTHROCIN [Concomitant]
     Active Substance: ERYTHROMYCIN LACTOBIONATE
     Dosage: UNK
     Route: 048
  8. SIROLIMUS. [Suspect]
     Active Substance: SIROLIMUS
     Indication: LYMPHANGIOLEIOMYOMATOSIS
     Dosage: 0.1 MG, DAILY
     Route: 048
     Dates: start: 20150114, end: 20150210
  9. SIROLIMUS. [Suspect]
     Active Substance: SIROLIMUS
     Dosage: 0.2 MG, DAILY
     Route: 048
     Dates: start: 20150211, end: 20150218
  10. SPIRONOLACTONE. [Concomitant]
     Active Substance: SPIRONOLACTONE
     Indication: LYMPHANGIOLEIOMYOMATOSIS
     Dosage: UNK
     Route: 048
  11. KEPPRA [Concomitant]
     Active Substance: LEVETIRACETAM
     Indication: LYMPHANGIOLEIOMYOMATOSIS
     Dosage: UNK
     Route: 048
  12. LASIX [Concomitant]
     Active Substance: FUROSEMIDE
     Indication: LYMPHANGIOLEIOMYOMATOSIS
     Dosage: UNK
     Route: 048
  13. L-CARTIN [Concomitant]
     Active Substance: LEVOCARNITINE HYDROCHLORIDE
     Dosage: UNK
     Route: 048
  14. GASMOTIN [Concomitant]
     Active Substance: MOSAPRIDE CITRATE
     Route: 048
  15. INCREMIN [Concomitant]
     Active Substance: FERRIC PYROPHOSPHATE
     Dosage: UNK
     Route: 048
  16. HALIZON [Concomitant]
     Indication: PROPHYLAXIS
     Dosage: UNK
     Route: 048
  17. PANTOL [Concomitant]
     Active Substance: DEXPANTHENOL
     Dosage: UNK

REACTIONS (3)
  - Fungal peritonitis [Unknown]
  - Fungal sepsis [Unknown]
  - Bacterial sepsis [Recovering/Resolving]

NARRATIVE: CASE EVENT DATE: 20150218
